FAERS Safety Report 5171140-7 (Version None)
Quarter: 2006Q4

REPORT INFORMATION
  Report Type: 
  Country: None (occurrence: None)
  Receive Date: 20061206
  Receipt Date: 20061206
  Transmission Date: 20070319
  Serious: Yes (Other)
  Sender: FDA-Public Use
  Company Number: None

PATIENT
  Age: 45 Year
  Sex: Female

DRUGS (1)
  1. AMBIEN CR [Suspect]
     Indication: INSOMNIA
     Dosage: 1 TAB  AT BEDTIME PO
     Route: 048
     Dates: start: 20061120, end: 20061201

REACTIONS (2)
  - ABNORMAL SLEEP-RELATED EVENT [None]
  - ROAD TRAFFIC ACCIDENT [None]
